FAERS Safety Report 7605985-8 (Version None)
Quarter: 2011Q3

REPORT INFORMATION
  Report Type: 
  Country: None (occurrence: None)
  Receive Date: 20110713
  Receipt Date: 20110708
  Transmission Date: 20111222
  Serious: Yes (Death, Other)
  Sender: FDA-Public Use
  Company Number: PHHY2011JP56541

PATIENT
  Sex: Male
  Weight: 47 kg

DRUGS (12)
  1. GLUCOBAY [Concomitant]
     Dosage: 300 MG, UNK
     Route: 048
     Dates: start: 20081016, end: 20090421
  2. CANDESARTAN CILEXETIL [Concomitant]
     Indication: HYPERTENSION
     Dosage: 8 MG, UNK
     Route: 048
     Dates: start: 20080128, end: 20090430
  3. RASILEZ [Concomitant]
     Indication: HYPERTENSION
     Dosage: 150 MG, UNK
     Route: 048
     Dates: start: 20100706
  4. CALBLOCK [Concomitant]
     Indication: HYPERTENSION
     Dosage: 16 MG, UNK
     Route: 048
     Dates: start: 20071013, end: 20101108
  5. ISOSORBIDE DINITRATE [Concomitant]
     Dosage: 40 MG, UNK
     Route: 048
     Dates: start: 20080128
  6. PRAVASTATIN SODIUM [Concomitant]
     Dosage: 10 MG, UNK
     Route: 048
     Dates: start: 20080128, end: 20090421
  7. WARFARIN SODIUM [Concomitant]
     Dosage: 1 MG, UNK
     Route: 048
     Dates: start: 20080128, end: 20090421
  8. VALSARTAN [Suspect]
     Indication: HYPERTENSION
     Dosage: 80 MG, QD
     Route: 048
     Dates: start: 20090501
  9. DOXAZOSIN MESYLATE [Concomitant]
     Indication: HYPERTENSION
     Dosage: 2 MG, UNK
     Route: 048
     Dates: start: 20091013, end: 20100705
  10. AMLODIPINE [Concomitant]
     Indication: HYPERTENSION
     Dosage: 5 MG, UNK
     Route: 048
     Dates: start: 20101109
  11. DIAZEPAM [Concomitant]
     Dosage: 4 MG, UNK
     Route: 048
     Dates: start: 20080128
  12. LANSOPRAZOLE [Concomitant]
     Dosage: 30 MG, UNK
     Route: 048
     Dates: start: 20090425, end: 20100817

REACTIONS (2)
  - RENAL FAILURE CHRONIC [None]
  - BLOOD PRESSURE DIASTOLIC DECREASED [None]
